FAERS Safety Report 25562621 (Version 1)
Quarter: 2025Q3

REPORT INFORMATION
  Report Type: Spontaneous
  Country: CA (occurrence: CA)
  Receive Date: 20250716
  Receipt Date: 20250716
  Transmission Date: 20251020
  Serious: Yes (Hospitalization, Other)
  Sender: SANDOZ
  Company Number: CA-SANDOZ-SDZ2025CA049248

PATIENT
  Age: 72 Year
  Sex: Female

DRUGS (8)
  1. JARDIANCE [Suspect]
     Active Substance: EMPAGLIFLOZIN
     Indication: Product used for unknown indication
     Route: 065
  2. METFORMIN HYDROCHLORIDE [Suspect]
     Active Substance: METFORMIN HYDROCHLORIDE
     Indication: Product used for unknown indication
     Route: 048
  3. ALENDRONATE SODIUM [Concomitant]
     Active Substance: ALENDRONATE SODIUM
     Indication: Product used for unknown indication
     Dosage: 70 MG, QW
     Route: 048
  4. CALCIUM [Concomitant]
     Active Substance: CALCIUM
     Indication: Product used for unknown indication
     Dosage: 500 MG, QD
     Route: 048
  5. CALCIUM CARBONATE [Concomitant]
     Active Substance: CALCIUM CARBONATE
     Indication: Product used for unknown indication
     Dosage: 20000.0 IU, QD
     Route: 048
  6. IRBESARTAN [Concomitant]
     Active Substance: IRBESARTAN
     Indication: Product used for unknown indication
     Dosage: 150 MG, QD
     Route: 048
  7. PREMARIN [Concomitant]
     Active Substance: ESTROGENS, CONJUGATED
     Indication: Product used for unknown indication
     Dosage: 500 MG, QD
     Route: 065
  8. VITAMIN D [Concomitant]
     Active Substance: VITAMIN D NOS
     Indication: Product used for unknown indication
     Route: 065

REACTIONS (19)
  - Asthenia [Recovered/Resolved]
  - Blood bicarbonate decreased [Recovered/Resolved]
  - Blood creatinine increased [Recovered/Resolved]
  - Blood creatinine increased [Recovered/Resolved]
  - Blood glucose decreased [Recovered/Resolved]
  - Blood lactic acid increased [Recovered/Resolved]
  - Blood pH increased [Recovered/Resolved]
  - Blood pressure abnormal [Recovered/Resolved]
  - Carbon dioxide increased [Recovered/Resolved]
  - Delirium [Recovered/Resolved]
  - Euglycaemic diabetic ketoacidosis [Recovered/Resolved]
  - Fall [Recovered/Resolved]
  - Glomerular filtration rate decreased [Recovered/Resolved]
  - Heart rate increased [Recovered/Resolved]
  - Lactic acidosis [Recovered/Resolved]
  - Oxygen saturation increased [Recovered/Resolved]
  - Respiratory rate increased [Recovered/Resolved]
  - Urosepsis [Recovered/Resolved]
  - Vomiting [Recovered/Resolved]
